FAERS Safety Report 7723484-X (Version None)
Quarter: 2011Q3

REPORT INFORMATION
  Report Type: 
  Country: None (occurrence: None)
  Receive Date: 20110901
  Receipt Date: 20110829
  Transmission Date: 20111222
  Serious: No
  Sender: FDA-Public Use
  Company Number: US-PFIZER INC-2011201546

PATIENT
  Sex: Female
  Weight: 27.2 kg

DRUGS (1)
  1. CHILDREN'S ADVIL [Suspect]
     Indication: NASOPHARYNGITIS
     Dosage: UNK,EVERY 8 HOURS
     Route: 065
     Dates: start: 20110828, end: 20110829

REACTIONS (1)
  - MALAISE [None]
